FAERS Safety Report 8509833-3 (Version None)
Quarter: 2012Q2

REPORT INFORMATION
  Report Type: 
  Country: None (occurrence: None)
  Receive Date: 20120405
  Receipt Date: 20090610
  Transmission Date: 20120825
  Serious: Yes (Hospitalization)
  Sender: FDA-Public Use
  Company Number: PHEH2009US06048

PATIENT

DRUGS (1)
  1. RECLAST [Suspect]
     Indication: OSTEOPOROSIS
     Dosage: 5 MG, INTRAVENOUS
     Route: 042

REACTIONS (1)
  - HYPOCALCAEMIA [None]
